FAERS Safety Report 15296595 (Version 2)
Quarter: 2018Q3

REPORT INFORMATION
  Report Type: Report from Study
  Country: MX (occurrence: MX)
  Receive Date: 20180820
  Receipt Date: 20180906
  Transmission Date: 20181010
  Serious: Yes (Death, Hospitalization)
  Sender: FDA-Public Use
  Company Number: PHHY2018MX004858

PATIENT
  Age: 81 Year
  Sex: Male
  Weight: 50 kg

DRUGS (4)
  1. MICCIL [Concomitant]
     Indication: RENAL DISORDER
     Dosage: Q8H
     Route: 065
     Dates: start: 20180508
  2. ENTRESTO [Suspect]
     Active Substance: SACUBITRIL\VALSARTAN
     Dosage: 1 DF (50 MG), QD
     Route: 048
  3. LASIX [Concomitant]
     Active Substance: FUROSEMIDE
     Indication: RENAL DISORDER
     Dosage: Q12H
     Route: 065
     Dates: start: 20180508
  4. ENTRESTO [Suspect]
     Active Substance: SACUBITRIL\VALSARTAN
     Indication: CARDIAC FAILURE
     Dosage: 50 MG (HALF TABLET), QD (AT NIGHT)
     Route: 048
     Dates: start: 20180511, end: 20180610

REACTIONS (6)
  - Prescribed underdose [Unknown]
  - Arrhythmia [Fatal]
  - Wrong technique in product usage process [Unknown]
  - Inappropriate schedule of drug administration [Unknown]
  - Cardio-respiratory arrest [Fatal]
  - Drug prescribing error [Unknown]

NARRATIVE: CASE EVENT DATE: 20180611
